FAERS Safety Report 6442621-0 (Version None)
Quarter: 2009Q4

REPORT INFORMATION
  Report Type: 
  Country: None (occurrence: None)
  Receive Date: 20091117
  Receipt Date: 20091110
  Transmission Date: 20100525
  Serious: Yes (Other)
  Sender: FDA-Public Use
  Company Number: US-JNJFOC-20091102916

PATIENT
  Sex: Male
  Weight: 109.77 kg

DRUGS (4)
  1. RISPERDAL [Suspect]
     Indication: BIPOLAR I DISORDER
     Route: 048
  2. RISPERDAL CONSTA [Suspect]
     Indication: BIPOLAR I DISORDER
     Route: 030
  3. INVEGA SUSTENNA [Concomitant]
     Route: 030
  4. INVEGA SUSTENNA [Concomitant]
     Indication: BIPOLAR I DISORDER
     Route: 030

REACTIONS (3)
  - ANGINA PECTORIS [None]
  - HEART RATE IRREGULAR [None]
  - URINE OUTPUT INCREASED [None]
